FAERS Safety Report 23608086 (Version 1)
Quarter: 2024Q1

REPORT INFORMATION
  Report Type: Spontaneous
  Country: US (occurrence: US)
  Receive Date: 20240307
  Receipt Date: 20240307
  Transmission Date: 20240410
  Serious: No
  Sender: FDA-Public Use
  Company Number: US-CARA THERAPEUTICS, INC.-2024-00040-US

PATIENT
  Age: 83 Year
  Sex: Female

DRUGS (4)
  1. KORSUVA [Suspect]
     Active Substance: DIFELIKEFALIN ACETATE
     Indication: Product used for unknown indication
     Dosage: 0.9 ML, 3X WEEKLY
     Dates: start: 20230303, end: 20230331
  2. TYLENOL [Concomitant]
     Active Substance: ACETAMINOPHEN
     Indication: Pain
     Dosage: UNK, PRN
  3. ATIVAN [Concomitant]
     Active Substance: LORAZEPAM
     Indication: Feeling of relaxation
     Dosage: 0.5 MILLIGRAM, QD
  4. ATIVAN [Concomitant]
     Active Substance: LORAZEPAM
     Indication: Nervousness

REACTIONS (2)
  - Confusional state [Recovered/Resolved]
  - Hallucination [Recovered/Resolved]

NARRATIVE: CASE EVENT DATE: 20230306
